FAERS Safety Report 16531727 (Version 2)
Quarter: 2019Q3

REPORT INFORMATION
  Report Type: Spontaneous
  Country: HR (occurrence: HR)
  Receive Date: 20190705
  Receipt Date: 20190724
  Transmission Date: 20191004
  Serious: Yes (Other)
  Sender: FDA-Public Use
  Company Number: HR-PFIZER INC-2019279900

PATIENT
  Age: 67 Year
  Sex: Female

DRUGS (2)
  1. PEGFILGRASTIM HOSPIRA [Suspect]
     Active Substance: PEGFILGRASTIM
     Indication: CERVIX CARCINOMA STAGE III
     Dosage: UNK
     Route: 065
  2. FILGRASTIM [Suspect]
     Active Substance: FILGRASTIM
     Indication: CERVIX CARCINOMA STAGE III
     Dosage: UNK
     Route: 065

REACTIONS (5)
  - Bone pain [Unknown]
  - Influenza [Unknown]
  - Pyrexia [Unknown]
  - Myalgia [Unknown]
  - Neutropenia [Unknown]
